FAERS Safety Report 4308038-X (Version None)
Quarter: 2004Q1

REPORT INFORMATION
  Report Type: 
  Country: None (occurrence: None)
  Receive Date: 20040301
  Receipt Date: 20030403
  Transmission Date: 20041129
  Serious: No
  Sender: FDA-Public Use
  Company Number: US-BRISTOL-MYERS SQUIBB COMPANY-12230082

PATIENT
  Age: 36 Year
  Sex: Female
  Weight: 87 kg

DRUGS (1)
  1. GLUCOPHAGE [Suspect]
     Indication: DIABETES MELLITUS
     Route: 048
     Dates: start: 20020501

REACTIONS (3)
  - ALOPECIA [None]
  - DYSPEPSIA [None]
  - FLATULENCE [None]
